FAERS Safety Report 5408549-X (Version None)
Quarter: 2007Q3

REPORT INFORMATION
  Report Type: 
  Country: None (occurrence: None)
  Receive Date: 20070808
  Receipt Date: 20070730
  Transmission Date: 20080115
  Serious: Yes (Other)
  Sender: FDA-Public Use
  Company Number: FR-AVENTIS-200712457FR

PATIENT
  Age: 61 Year
  Sex: Male

DRUGS (3)
  1. CALSYN                             /00371903/ [Suspect]
     Dates: start: 20070101, end: 20070101
  2. CALSYN                             /00371903/ [Suspect]
     Dates: start: 20070101, end: 20070101
  3. ANTIHYPERTENSIVES [Concomitant]
     Indication: HYPERTENSION

REACTIONS (4)
  - CATARACT [None]
  - COLOUR BLINDNESS [None]
  - PHOTOPHOBIA [None]
  - VISION BLURRED [None]
